FAERS Safety Report 7358828-4 (Version None)
Quarter: 2011Q1

REPORT INFORMATION
  Report Type: 
  Country: None (occurrence: None)
  Receive Date: 20110317
  Receipt Date: 20101109
  Transmission Date: 20110831
  Serious: Yes (Hospitalization)
  Sender: FDA-Public Use
  Company Number: B0684067A

PATIENT
  Sex: Female
  Weight: 50 kg

DRUGS (9)
  1. ETOPOSIDE [Suspect]
     Indication: STEM CELL TRANSPLANT
     Dosage: 200MGM2 PER DAY
     Route: 042
     Dates: start: 20100910, end: 20100913
  2. ITRIZOLE [Concomitant]
     Dosage: 20ML PER DAY
     Route: 048
     Dates: start: 20100908, end: 20100930
  3. NEUTROGIN [Concomitant]
     Route: 042
     Dates: start: 20100918, end: 20100928
  4. ALKERAN [Suspect]
     Indication: STEM CELL TRANSPLANT
     Dosage: 70MGM2 PER DAY
     Route: 042
     Dates: start: 20100914, end: 20100915
  5. CYMERIN [Suspect]
     Indication: STEM CELL TRANSPLANT
     Dosage: 300MGM2 PER DAY
     Route: 042
     Dates: start: 20100909, end: 20100909
  6. CYLOCIDE [Suspect]
     Indication: STEM CELL TRANSPLANT
     Dosage: 400MGM2 PER DAY
     Route: 042
     Dates: start: 20100910, end: 20100913
  7. CRAVIT [Concomitant]
     Dosage: 500MG PER DAY
     Route: 048
     Dates: start: 20100908, end: 20100929
  8. ZOVIRAX [Concomitant]
     Dosage: 1000MG PER DAY
     Route: 048
     Dates: start: 20100909
  9. LANSOPRAZOLE [Concomitant]
     Indication: PROPHYLAXIS
     Dosage: 30MG PER DAY
     Route: 048
     Dates: start: 20101006

REACTIONS (3)
  - C-REACTIVE PROTEIN INCREASED [None]
  - DIARRHOEA [None]
  - FEBRILE NEUTROPENIA [None]
